FAERS Safety Report 26070220 (Version 1)
Quarter: 2025Q4

REPORT INFORMATION
  Report Type: Report from Study
  Country: US (occurrence: US)
  Receive Date: 20251120
  Receipt Date: 20251120
  Transmission Date: 20260118
  Serious: No
  Sender: ACADIA PHARMACEUTICALS
  Company Number: US-ACADIA PHARMACEUTICALS INC.-ACA-2025-PIM-012386

PATIENT
  Age: 73 Year
  Sex: Male

DRUGS (19)
  1. NUPLAZID [Suspect]
     Active Substance: PIMAVANSERIN TARTRATE
     Indication: Hallucination
     Dosage: 34 MILLIGRAM, QD
     Route: 048
     Dates: start: 20250922, end: 20251107
  2. NUPLAZID [Suspect]
     Active Substance: PIMAVANSERIN TARTRATE
     Indication: Parkinson^s disease
  3. AMANTADINE [Concomitant]
     Active Substance: AMANTADINE
  4. BENZONATATE [Concomitant]
     Active Substance: BENZONATATE
     Dosage: UNK MILLIGRAM
  5. CARBIDOPA\LEVODOPA [Concomitant]
     Active Substance: CARBIDOPA\LEVODOPA
     Dosage: UNK (25-200)
  6. CLINDAMYCIN [Concomitant]
     Active Substance: CLINDAMYCIN
  7. DIAZEPAM [Concomitant]
     Active Substance: DIAZEPAM
  8. DUTASTERIDE [Concomitant]
     Active Substance: DUTASTERIDE
  9. ENTACAPONE [Concomitant]
     Active Substance: ENTACAPONE
  10. LACTOBACILLUS ACIDOPHILUS [Concomitant]
     Active Substance: LACTOBACILLUS ACIDOPHILUS
  11. FLUDROCORTISONE [Concomitant]
     Active Substance: FLUDROCORTISONE
  12. KETOCONAZOLE [Concomitant]
     Active Substance: KETOCONAZOLE
  13. HYDROCORTISONE [Concomitant]
     Active Substance: HYDROCORTISONE
  14. KEPPRA [Concomitant]
     Active Substance: LEVETIRACETAM
  15. MIDODRINE [Concomitant]
     Active Substance: MIDODRINE
  16. QUETIAPINE [Concomitant]
     Active Substance: QUETIAPINE
  17. PYRIDOSTIGMINE [Concomitant]
     Active Substance: PYRIDOSTIGMINE
  18. TRAZODONE [Concomitant]
     Active Substance: TRAZODONE HYDROCHLORIDE
  19. TAMSULOSIN [Concomitant]
     Active Substance: TAMSULOSIN

REACTIONS (1)
  - Drug ineffective [Recovered/Resolved]

NARRATIVE: CASE EVENT DATE: 20251107
